FAERS Safety Report 4539244-7 (Version None)
Quarter: 2004Q4

REPORT INFORMATION
  Report Type: 
  Country: None (occurrence: None)
  Receive Date: 20041228
  Receipt Date: 20041217
  Transmission Date: 20050328
  Serious: Yes (Hospitalization)
  Sender: FDA-Public Use
  Company Number: DE-JNJFOC-20041205008

PATIENT
  Sex: Male
  Weight: 63 kg

DRUGS (7)
  1. REMICADE [Suspect]
     Route: 042
  2. PREDNISOLONE [Suspect]
  3. IDEOS [Concomitant]
  4. IDEOS [Concomitant]
     Indication: OSTEOPOROSIS
  5. FOSAMAX [Concomitant]
     Indication: OSTEOPOROSIS
  6. DICLOFENAC [Concomitant]
     Indication: PAIN
  7. CIPROFLOXACIN [Concomitant]
     Indication: URINARY TRACT INFECTION

REACTIONS (4)
  - BLOOD CREATINE PHOSPHOKINASE INCREASED [None]
  - CHEST PAIN [None]
  - PLEURISY [None]
  - PNEUMONIA [None]
